FAERS Safety Report 16971411 (Version 1)
Quarter: 2019Q4

REPORT INFORMATION
  Report Type: Spontaneous
  Country: US (occurrence: US)
  Receive Date: 20191028
  Receipt Date: 20191028
  Transmission Date: 20200122
  Serious: Yes (Hospitalization)
  Sender: FDA-Public Use
  Company Number: None

PATIENT
  Sex: Female

DRUGS (7)
  1. OCTREOTIDE. [Suspect]
     Active Substance: OCTREOTIDE
     Indication: OVARIAN CANCER
     Route: 058
     Dates: start: 20180807
  2. ONDANSETRON [Concomitant]
     Active Substance: ONDANSETRON
  3. POT CLO MIRCO TAB [Concomitant]
  4. PROCHLORPER [Concomitant]
  5. TRAMADOL. [Concomitant]
     Active Substance: TRAMADOL
  6. ALBUTEROL. [Concomitant]
     Active Substance: ALBUTEROL
  7. MAG OXIDE [Concomitant]
     Active Substance: MAGNESIUM OXIDE

REACTIONS (2)
  - Electrolyte imbalance [None]
  - Blood sodium decreased [None]
